FAERS Safety Report 25014109 (Version 1)
Quarter: 2025Q1

REPORT INFORMATION
  Report Type: Spontaneous
  Country: US (occurrence: None)
  Receive Date: 20250226
  Receipt Date: 20250226
  Transmission Date: 20250409
  Serious: No
  Sender: FDA-CTU
  Company Number: None

PATIENT
  Age: 55 Year
  Sex: Female
  Weight: 62.55 kg

DRUGS (3)
  1. VERSED [Suspect]
     Active Substance: MIDAZOLAM HYDROCHLORIDE
     Indication: Nerve block
     Route: 050
     Dates: start: 20250224, end: 20250224
  2. probiotic supplement [Concomitant]
  3. DIETARY SUPPLEMENT [Concomitant]
     Active Substance: DIETARY SUPPLEMENT

REACTIONS (2)
  - Burning sensation [None]
  - Hypoaesthesia [None]

NARRATIVE: CASE EVENT DATE: 20250224
